FAERS Safety Report 7730396-4 (Version None)
Quarter: 2011Q3

REPORT INFORMATION
  Report Type: 
  Country: None (occurrence: None)
  Receive Date: 20110901
  Receipt Date: 20110901
  Transmission Date: 20111222
  Serious: Yes (Life-Threatening, Hospitalization, Disabling, Other)
  Sender: FDA-Public Use
  Company Number: None

PATIENT
  Sex: Male
  Weight: 63.5036 kg

DRUGS (4)
  1. AXONA (MEDICAL FOOD) [Concomitant]
  2. NAMENDA [Suspect]
     Dates: start: 20090101, end: 20110101
  3. DONEPEZIL HCL [Suspect]
     Indication: DEMENTIA ALZHEIMER'S TYPE
     Dosage: 10MG ONE DAILY ORAL
     Route: 048
     Dates: start: 20090101, end: 20110101
  4. NAMENDA [Suspect]
     Indication: DEMENTIA ALZHEIMER'S TYPE
     Dosage: 10 MG TWICE DAILY ORAL
     Route: 048
     Dates: start: 20090101, end: 20110101

REACTIONS (15)
  - NAUSEA [None]
  - VISUAL FIELD DEFECT [None]
  - ALTERED VISUAL DEPTH PERCEPTION [None]
  - CHILLS [None]
  - NERVOUSNESS [None]
  - HOSPITALISATION [None]
  - HEART RATE DECREASED [None]
  - DIZZINESS [None]
  - HYPERHIDROSIS [None]
  - COLD SWEAT [None]
  - DYSPEPSIA [None]
  - LOSS OF CONSCIOUSNESS [None]
  - FEELING JITTERY [None]
  - VOMITING [None]
  - DEMENTIA [None]
